FAERS Safety Report 5444468-0 (Version None)
Quarter: 2007Q3

REPORT INFORMATION
  Report Type: 
  Country: None (occurrence: None)
  Receive Date: 20070906
  Receipt Date: 20070828
  Transmission Date: 20080115
  Serious: Yes (Hospitalization)
  Sender: FDA-Public Use
  Company Number: US-JNJFOC-20070806336

PATIENT
  Sex: Female
  Weight: 83.92 kg

DRUGS (7)
  1. DURAGESIC-100 [Suspect]
     Indication: PAIN
     Route: 062
  2. MORPHINE [Suspect]
     Indication: PAIN
     Route: 048
  3. XANAX [Concomitant]
     Indication: ANXIETY
     Route: 048
  4. ZOLOFT [Concomitant]
     Indication: DEPRESSION
     Route: 048
  5. SEROQUEL [Concomitant]
     Route: 048
  6. SEROQUEL [Concomitant]
     Indication: DEPRESSION
     Route: 048
  7. COPAXONE [Concomitant]
     Indication: MULTIPLE SCLEROSIS
     Route: 058

REACTIONS (11)
  - CONVULSION [None]
  - DEPRESSION [None]
  - DERMATITIS CONTACT [None]
  - DIVERTICULUM [None]
  - DRUG ADMINISTERED AT INAPPROPRIATE SITE [None]
  - FALL [None]
  - HEAD INJURY [None]
  - NAUSEA [None]
  - RESTLESS LEGS SYNDROME [None]
  - SLEEP DISORDER [None]
  - WRONG TECHNIQUE IN DRUG USAGE PROCESS [None]
